FAERS Safety Report 9979647 (Version 2)
Quarter: 2014Q1

REPORT INFORMATION
  Report Type: Report from Study
  Country: US (occurrence: US)
  Receive Date: 20140306
  Receipt Date: 20140306
  Transmission Date: 20141002
  Serious: No
  Sender: FDA-Public Use
  Company Number: US-ABBVIE-13P-163-1156193-00

PATIENT
  Age: 37 Year
  Sex: Female

DRUGS (4)
  1. HUMIRA [Suspect]
     Indication: CROHN^S DISEASE
     Dates: start: 20130913, end: 20130913
  2. HUMIRA [Suspect]
     Dates: start: 20130927, end: 20130927
  3. HUMIRA [Suspect]
     Dates: end: 20131011
  4. HUMIRA [Suspect]
     Dates: start: 20131018

REACTIONS (5)
  - Headache [Recovered/Resolved]
  - Sinus congestion [Recovered/Resolved]
  - Fatigue [Not Recovered/Not Resolved]
  - Hyperhidrosis [Unknown]
  - Drug dose omission [Recovered/Resolved]
